FAERS Safety Report 9013490 (Version 1)
Quarter: 2013Q1

REPORT INFORMATION
  Report Type: Spontaneous
  Country: US (occurrence: US)
  Receive Date: 20130115
  Receipt Date: 20130115
  Transmission Date: 20140127
  Serious: Yes (Hospitalization)
  Sender: FDA-Public Use
  Company Number: US-BAYER-2013-003956

PATIENT
  Age: 30 Year
  Sex: Female
  Weight: 91.16 kg

DRUGS (11)
  1. YAZ [Suspect]
  2. GIANVI [Suspect]
  3. TRIAZOLAM [Concomitant]
     Dosage: 0.25 MG, UNK
     Route: 048
  4. PREDNISOLONE [Concomitant]
     Dosage: 50 MG, UNK
     Route: 048
  5. BUPROPION HYDROCHLORIDE [Concomitant]
     Dosage: 75 MG, UNK
     Route: 048
  6. ACYCLOVIR [ACICLOVIR] [Concomitant]
     Dosage: 400 MG, UNK
     Route: 048
  7. OMEPRAZOLE [Concomitant]
     Dosage: 20 MG, UNK
     Route: 048
  8. AMOXICILLIN [Concomitant]
     Dosage: 500 MG, UNK
     Route: 048
     Dates: start: 201104
  9. ADVIL [Concomitant]
     Indication: PAIN
     Dosage: UNK
     Dates: start: 20110411
  10. ALBUTEROL [Concomitant]
     Dosage: UNK
     Dates: start: 20110411
  11. CELEXA [Concomitant]
     Dosage: UNK
     Dates: start: 20110411

REACTIONS (1)
  - Pulmonary embolism [None]
